FAERS Safety Report 23116970 (Version 1)
Quarter: 2023Q4

REPORT INFORMATION
  Report Type: Spontaneous
  Country: US (occurrence: None)
  Receive Date: 20231027
  Receipt Date: 20231027
  Transmission Date: 20240110
  Serious: Yes (Hospitalization)
  Sender: FDA-Public Use
  Company Number: None

PATIENT
  Age: 75 Year
  Sex: Female
  Weight: 51.9 kg

DRUGS (1)
  1. SEROQUEL [Suspect]
     Active Substance: QUETIAPINE FUMARATE
     Indication: Dementia
     Dosage: FREQUENCY : DAILY;?
     Route: 048
     Dates: start: 20231006

REACTIONS (2)
  - Hypothyroidism [None]
  - Hyponatraemia [None]

NARRATIVE: CASE EVENT DATE: 20231019
